FAERS Safety Report 7055777-6 (Version None)
Quarter: 2010Q4

REPORT INFORMATION
  Report Type: 
  Country: None (occurrence: None)
  Receive Date: 20101021
  Receipt Date: 20101011
  Transmission Date: 20110411
  Serious: Yes (Other)
  Sender: FDA-Public Use
  Company Number: JP-ROCHE-734257

PATIENT
  Age: 70 Year
  Sex: Male

DRUGS (5)
  1. BEVACIZUMAB [Suspect]
     Indication: COLORECTAL CANCER
     Route: 065
  2. LEUCOVORIN CALCIUM [Suspect]
     Indication: COLORECTAL CANCER
     Route: 065
  3. FLUOROURACIL [Suspect]
     Indication: COLORECTAL CANCER
     Route: 065
  4. OXALIPLATIN [Suspect]
     Indication: COLORECTAL CANCER
     Route: 065
  5. IRINOTECAN HCL [Suspect]
     Indication: COLORECTAL CANCER
     Route: 065

REACTIONS (1)
  - INTERSTITIAL LUNG DISEASE [None]
